FAERS Safety Report 10572720 (Version 1)
Quarter: 2014Q4

REPORT INFORMATION
  Report Type: Spontaneous
  Country: US (occurrence: None)
  Receive Date: 20141107
  Receipt Date: 20141107
  Transmission Date: 20150529
  Serious: No
  Sender: FDA-Public Use
  Company Number: None

PATIENT
  Age: 66 Year
  Sex: Male
  Weight: 137.9 kg

DRUGS (3)
  1. BACLOFEN. [Suspect]
     Active Substance: BACLOFEN
     Indication: PAIN
     Route: 048
     Dates: start: 20140702, end: 20140702
  2. BACLOFEN. [Suspect]
     Active Substance: BACLOFEN
     Indication: BACK PAIN
     Route: 048
     Dates: start: 20140702, end: 20140702
  3. BACLOFEN. [Suspect]
     Active Substance: BACLOFEN
     Indication: PRODUCT USED FOR UNKNOWN INDICATION
     Route: 048
     Dates: start: 20140702, end: 20140702

REACTIONS (8)
  - Exophthalmos [None]
  - Somnolence [None]
  - Acute kidney injury [None]
  - Dehydration [None]
  - Delirium [None]
  - Sedation [None]
  - Conjunctival hyperaemia [None]
  - Mental status changes [None]

NARRATIVE: CASE EVENT DATE: 20140702
